FAERS Safety Report 9555796 (Version 2)
Quarter: 2013Q4

REPORT INFORMATION
  Report Type: Spontaneous
  Country: US (occurrence: US)
  Receive Date: 20130926
  Receipt Date: 20131008
  Transmission Date: 20140711
  Serious: Yes (Hospitalization, Other)
  Sender: FDA-Public Use
  Company Number: US-BAYER-2013-116098

PATIENT
  Age: 32 Year
  Sex: Female
  Weight: 57.6 kg

DRUGS (9)
  1. YAZ [Suspect]
     Indication: CONTRACEPTION
     Dosage: UNK
     Dates: start: 200808, end: 200902
  2. GIANVI [Suspect]
     Indication: CONTRACEPTION
     Dosage: UNK
     Dates: start: 201009, end: 20110807
  3. ZOLOFT [Concomitant]
     Indication: POSTPARTUM DEPRESSION
     Dosage: UNK
     Route: 048
     Dates: start: 201011
  4. SERTRALINE HYDROCHLORIDE [Concomitant]
     Dosage: 25 MG, UNK
     Route: 048
  5. FOLIC ACID [Concomitant]
  6. DILAUDID [Concomitant]
     Dosage: 4 MG, EVERY 4 HOURS
  7. TORADOL [Concomitant]
     Dosage: 10 MG, EVERY 4 HOURS
  8. VERAPAMIL [Concomitant]
  9. REGLAN [Concomitant]

REACTIONS (8)
  - Cerebrovascular accident [Recovered/Resolved]
  - Injury [Recovered/Resolved]
  - Emotional distress [None]
  - Depression [None]
  - Fear of death [None]
  - Nervousness [None]
  - Pain [Recovered/Resolved]
  - Migraine [None]
